FAERS Safety Report 15965169 (Version 1)
Quarter: 2019Q1

REPORT INFORMATION
  Report Type: Spontaneous
  Country: GB (occurrence: GB)
  Receive Date: 20190215
  Receipt Date: 20190215
  Transmission Date: 20190418
  Serious: Yes (Other)
  Sender: FDA-Public Use
  Company Number: GB-TEVA-2019-GB-1011223

PATIENT
  Age: 44 Year
  Sex: Male
  Weight: 111 kg

DRUGS (5)
  1. COCODAMOL [Suspect]
     Active Substance: ACETAMINOPHEN\CODEINE PHOSPHATE
     Indication: JOINT INJURY
     Dosage: 15MG/500MG - TAKE TWO 4 TIMES/DAY
     Dates: start: 20181204, end: 20181205
  2. ZOPICLONE [Concomitant]
     Active Substance: ZOPICLONE
     Dosage: 1 DOSAGE FORMS DAILY; NIGHT
     Dates: start: 20181030, end: 20181113
  3. LANSOPRAZOLE. [Concomitant]
     Active Substance: LANSOPRAZOLE
     Dosage: 1 DOSAGE FORMS DAILY; TO PROTECT STOMACH
     Dates: start: 20181204, end: 20190101
  4. ARCOXIA [Concomitant]
     Active Substance: ETORICOXIB
     Dosage: 1 DOSAGE FORMS DAILY;
     Dates: start: 20150209, end: 20181030
  5. NAPROXEN. [Concomitant]
     Active Substance: NAPROXEN
     Dosage: 2 DOSAGE FORMS DAILY;
     Dates: start: 20181204, end: 20190101

REACTIONS (2)
  - Depressed mood [Recovered/Resolved]
  - Anger [Recovered/Resolved]
